FAERS Safety Report 10067863 (Version 2)
Quarter: 2014Q2

REPORT INFORMATION
  Report Type: Spontaneous
  Country: US (occurrence: US)
  Receive Date: 20140409
  Receipt Date: 20140506
  Transmission Date: 20141212
  Serious: No
  Sender: FDA-Public Use
  Company Number: US-009507513-1403USA010581

PATIENT
  Age: 62 Year
  Sex: Female

DRUGS (6)
  1. DULERA [Suspect]
     Indication: CHRONIC OBSTRUCTIVE PULMONARY DISEASE
     Dosage: 2 INHALATIONS TWICE DAILY
     Route: 055
     Dates: start: 201303
  2. ATENOLOL [Concomitant]
  3. LYRICA [Concomitant]
  4. PRINIVIL [Concomitant]
     Route: 048
  5. XOPENEX [Concomitant]
  6. HYDROCODONE [Concomitant]

REACTIONS (4)
  - Dyspnoea [Recovered/Resolved]
  - Blood pressure increased [Recovered/Resolved]
  - Drug dose omission [Unknown]
  - Product quality issue [Unknown]
